FAERS Safety Report 5921360-6 (Version None)
Quarter: 2008Q4

REPORT INFORMATION
  Report Type: 
  Country: None (occurrence: None)
  Receive Date: 20081014
  Receipt Date: 20081006
  Transmission Date: 20090506
  Serious: Yes (Hospitalization)
  Sender: FDA-Public Use
  Company Number: 6046235

PATIENT
  Age: 82 Year
  Sex: Female

DRUGS (8)
  1. HYDROCHLOROTHIAZIDE [Suspect]
     Indication: BLOOD PH NORMAL
     Dosage: 1 DOSAGE FORMS (1 DOSAGE FORMS, 1 IN 1 D) ORAL
     Route: 048
     Dates: end: 20080827
  2. DIGOXIN [Suspect]
     Indication: DRUG USE FOR UNKNOWN INDICATION
     Dosage: 1 DOSAGE FORMS (1 DOSAGE FORMS, 1 IN 1 D) ORAL
     Route: 048
     Dates: end: 20080827
  3. BISOPROLOL (10 MG, TABLET) (BISOPROLOL) [Concomitant]
  4. AVANDAMET (TABLET) (METFORMIN HYDROCHLORIDE, ROSIGLITAZONE MALEATE) [Concomitant]
  5. MEDIATENSYL (CAPSULE) (URAPIDIL) [Concomitant]
  6. STILNOX (TABLET) (ZOLPIDEM) [Concomitant]
  7. LYSANXIA (TABLET) (PRAZEPAM) [Concomitant]
  8. ACETAMINOPHEN [Concomitant]

REACTIONS (4)
  - ATRIAL FIBRILLATION [None]
  - BRADYCARDIA [None]
  - SINOATRIAL BLOCK [None]
  - SINUS ARREST [None]
